FAERS Safety Report 4762861-6 (Version None)
Quarter: 2005Q3

REPORT INFORMATION
  Report Type: 
  Country: None (occurrence: None)
  Receive Date: 20050907
  Receipt Date: 20050829
  Transmission Date: 20060218
  Serious: Yes (Hospitalization)
  Sender: FDA-Public Use
  Company Number: PHBS2005BR12856

PATIENT
  Age: 53 Year
  Sex: Male

DRUGS (1)
  1. GLEEVEC [Suspect]
     Indication: GASTROINTESTINAL STROMAL TUMOUR
     Dosage: 100 MG, QD4SDO
     Route: 048
     Dates: start: 20021001

REACTIONS (3)
  - BLADDER CANCER [None]
  - CHROMATURIA [None]
  - HAEMATURIA [None]
